FAERS Safety Report 5809380-3 (Version None)
Quarter: 2008Q3

REPORT INFORMATION
  Report Type: 
  Country: None (occurrence: None)
  Receive Date: 20080714
  Receipt Date: 20080709
  Transmission Date: 20090109
  Serious: Yes (Death, Hospitalization)
  Sender: FDA-Public Use
  Company Number: PHHY2008JP13576

PATIENT
  Age: 77 Year
  Sex: Female

DRUGS (1)
  1. DICLOFENAC SODIUM [Suspect]
     Indication: ARTHRALGIA
     Route: 054

REACTIONS (5)
  - DISSEMINATED INTRAVASCULAR COAGULATION [None]
  - PERITONITIS [None]
  - PNEUMONIA [None]
  - SEPSIS [None]
  - SMALL INTESTINE ULCER [None]
